FAERS Safety Report 17332974 (Version 2)
Quarter: 2020Q1

REPORT INFORMATION
  Report Type: Spontaneous
  Country: DE (occurrence: DE)
  Receive Date: 20200128
  Receipt Date: 20200304
  Transmission Date: 20200409
  Serious: Yes (Death, Hospitalization)
  Sender: FDA-Public Use
  Company Number: DE-MYLANLABS-2020M1010033

PATIENT
  Sex: Male
  Weight: 97 kg

DRUGS (1)
  1. PEGFILGRASTIM [Suspect]
     Active Substance: PEGFILGRASTIM
     Indication: NEUTROPENIA
     Dosage: STRENGTH: 6 MG 6 MG DAILY DOSE DRUG START AND END DATE: 28-SEP-2019
     Route: 058
     Dates: start: 20190928

REACTIONS (4)
  - General physical health deterioration [Fatal]
  - Leukocytosis [Not Recovered/Not Resolved]
  - Bile duct stenosis [Recovered/Resolved]
  - Neutrophilia [Recovered/Resolved]

NARRATIVE: CASE EVENT DATE: 20190819
